FAERS Safety Report 7383954-3 (Version None)
Quarter: 2011Q1

REPORT INFORMATION
  Report Type: 
  Country: None (occurrence: None)
  Receive Date: 20110330
  Receipt Date: 20110223
  Transmission Date: 20110831
  Serious: No
  Sender: FDA-Public Use
  Company Number: US-MYLANLABS-2011S1003889

PATIENT
  Age: 19 Year
  Sex: Female
  Weight: 63.5 kg

DRUGS (4)
  1. TOPIRAMATE [Suspect]
     Route: 048
     Dates: start: 20110101
  2. TOPIRAMATE [Suspect]
     Route: 048
     Dates: start: 20110101
  3. TOPIRAMATE [Suspect]
     Indication: WEIGHT DECREASED
     Route: 048
     Dates: start: 20100601, end: 20110101
  4. TOPIRAMATE [Suspect]
     Indication: MIGRAINE
     Route: 048
     Dates: start: 20100601, end: 20110101

REACTIONS (2)
  - DRUG INEFFECTIVE FOR UNAPPROVED INDICATION [None]
  - WEIGHT INCREASED [None]
